FAERS Safety Report 4615860-9 (Version None)
Quarter: 2005Q2

REPORT INFORMATION
  Report Type: 
  Country: None (occurrence: None)
  Receive Date: 20050311
  Receipt Date: 20041103
  Transmission Date: 20051028
  Serious: No
  Sender: FDA-Public Use
  Company Number: 2004-BP-11292BP

PATIENT
  Age: 62 Year
  Sex: Female

DRUGS (13)
  1. SPIRIVA [Suspect]
     Indication: CHRONIC OBSTRUCTIVE PULMONARY DISEASE
     Dosage: 18 MCG (18 MCG), IH
     Route: 055
     Dates: start: 20040901
  2. ALBUTEROL [Concomitant]
  3. ADVAIR DISKUS 100/50 [Concomitant]
  4. SINGULAIR (MONTELUKAST) [Concomitant]
  5. ZYRTEC [Concomitant]
  6. LIPITOR [Concomitant]
  7. AVAPRO [Concomitant]
  8. MIACALCIN [Concomitant]
  9. SYNTHROID [Concomitant]
  10. EFFEXOR [Concomitant]
  11. PROTONIX [Concomitant]
  12. CALCIUM GLUCONATE [Concomitant]
  13. GLUCOSAMINE + CHONDROITIN [Concomitant]

REACTIONS (1)
  - SKIN LACERATION [None]
